FAERS Safety Report 5858097-8 (Version None)
Quarter: 2008Q3

REPORT INFORMATION
  Report Type: 
  Country: None (occurrence: None)
  Receive Date: 20080818
  Receipt Date: 20080603
  Transmission Date: 20090109
  Serious: No
  Sender: FDA-Public Use
  Company Number: WAES 0806USA00680

PATIENT
  Age: 67 Year
  Sex: Female

DRUGS (10)
  1. JANUVIA [Suspect]
     Indication: TYPE 2 DIABETES MELLITUS
     Dosage: 100 MG/DAILY/PO
     Route: 048
     Dates: start: 20080201
  2. PREVACID [Concomitant]
  3. ASPIRIN [Concomitant]
  4. DIGOXIN [Concomitant]
  5. GLIMEPIRIDE [Concomitant]
  6. ISOSORBIDE MONONITRATE [Concomitant]
  7. LISINOPRIL [Concomitant]
  8. LORAZEPAM [Concomitant]
  9. MELATONIN [Concomitant]
  10. VERAPAMIL [Concomitant]

REACTIONS (2)
  - HEADACHE [None]
  - PRODUCTIVE COUGH [None]
